FAERS Safety Report 9486958 (Version 1)
Quarter: 2013Q3

REPORT INFORMATION
  Report Type: Spontaneous
  Country: FR (occurrence: FR)
  Receive Date: 20130829
  Receipt Date: 20130829
  Transmission Date: 20140515
  Serious: Yes (Hospitalization)
  Sender: FDA-Public Use
  Company Number: FR-JNJFOC-20130816410

PATIENT
  Age: 67 Year
  Sex: Female

DRUGS (16)
  1. XARELTO [Suspect]
     Indication: PULMONARY EMBOLISM
     Route: 048
     Dates: start: 201301, end: 201304
  2. XARELTO [Suspect]
     Indication: PULMONARY EMBOLISM
     Route: 048
     Dates: start: 201306, end: 20130802
  3. XARELTO [Suspect]
     Indication: EMBOLISM VENOUS
     Route: 048
     Dates: start: 201306, end: 20130802
  4. XARELTO [Suspect]
     Indication: EMBOLISM VENOUS
     Route: 048
     Dates: start: 201301, end: 201304
  5. XARELTO [Suspect]
     Indication: THROMBOSIS PROPHYLAXIS
     Route: 048
     Dates: start: 201306, end: 20130802
  6. XARELTO [Suspect]
     Indication: THROMBOSIS PROPHYLAXIS
     Route: 048
     Dates: start: 201301, end: 201304
  7. XARELTO [Suspect]
     Indication: DEEP VEIN THROMBOSIS
     Route: 048
     Dates: start: 201306, end: 20130802
  8. XARELTO [Suspect]
     Indication: DEEP VEIN THROMBOSIS
     Route: 048
     Dates: start: 201301, end: 201304
  9. DUROGESIC [Suspect]
     Indication: FIBROMYALGIA
     Dosage: DOSE: 25 G/H
     Route: 062
     Dates: start: 201306, end: 20130802
  10. DUROGESIC [Suspect]
     Indication: PAIN
     Dosage: DOSE: 25 G/H
     Route: 062
     Dates: start: 201306, end: 20130802
  11. TERCIAN [Concomitant]
     Route: 065
  12. INEXIUM [Concomitant]
     Route: 065
  13. SIFROL [Concomitant]
     Dosage: DOSE: 0.18 MG, 1-1-0-2
     Route: 065
  14. ALENDRONATE SODIUM/COLECALCIFEROL [Concomitant]
     Dosage: 70/5600
     Route: 065
  15. NEURONTIN [Concomitant]
     Dosage: DOSE: 300 1-1-1
     Route: 065
  16. CYMBALTA [Concomitant]
     Dosage: DOSE: 60 MG, 2-0-0
     Route: 065

REACTIONS (1)
  - Hepatitis acute [Recovered/Resolved]
